FAERS Safety Report 9274796 (Version 1)
Quarter: 2013Q2

REPORT INFORMATION
  Report Type: Report from Study
  Country: US (occurrence: US)
  Receive Date: 20130507
  Receipt Date: 20130507
  Transmission Date: 20140414
  Serious: Yes (Hospitalization)
  Sender: FDA-Public Use
  Company Number: US-ROCHE-1221642

PATIENT
  Sex: Female

DRUGS (2)
  1. XELODA [Suspect]
     Indication: BREAST CANCER
     Dosage: THREE TABLETS IN MORNING AND FOUR TABLETS IN EVEI
     Route: 048
  2. XELODA [Suspect]
     Dosage: TWO TABLETS IN MORNING AND THREE EVENING.
     Route: 065

REACTIONS (3)
  - Feeling cold [Recovered/Resolved]
  - Pruritus [Recovered/Resolved]
  - Diarrhoea [Recovered/Resolved]
